FAERS Safety Report 5571497-9 (Version None)
Quarter: 2007Q4

REPORT INFORMATION
  Report Type: 
  Country: None (occurrence: None)
  Receive Date: 20071221
  Receipt Date: 20071207
  Transmission Date: 20080405
  Serious: No
  Sender: FDA-Public Use
  Company Number: US-BAYER-200715953NA

PATIENT
  Age: 28 Year
  Sex: Female
  Weight: 69 kg

DRUGS (1)
  1. YAZ [Suspect]
     Indication: CONTRACEPTION
     Dosage: TOTAL DAILY DOSE: 1 DF
     Dates: start: 20071015, end: 20071207

REACTIONS (5)
  - ABDOMINAL PAIN LOWER [None]
  - ACNE [None]
  - MENSTRUAL DISORDER [None]
  - MOOD SWINGS [None]
  - PREGNANCY ON ORAL CONTRACEPTIVE [None]
